FAERS Safety Report 20565312 (Version 1)
Quarter: 2022Q1

REPORT INFORMATION
  Report Type: Report from Study
  Country: JP (occurrence: JP)
  Receive Date: 20220308
  Receipt Date: 20220308
  Transmission Date: 20220423
  Serious: Yes (Hospitalization)
  Sender: FDA-Public Use
  Company Number: JP-INSMED INCORPORATED-2021-09323-JPAA

PATIENT
  Age: 71 Year
  Sex: Female

DRUGS (2)
  1. ARIKAYCE [Suspect]
     Active Substance: AMIKACIN
     Indication: Product used for unknown indication
     Dosage: UNK
     Route: 055
     Dates: start: 202108, end: 202110
  2. ARIKAYCE [Suspect]
     Active Substance: AMIKACIN
     Dosage: UNK
     Route: 055
     Dates: end: 20220206

REACTIONS (12)
  - Hospitalisation [Unknown]
  - Pyrexia [Unknown]
  - Malaise [Unknown]
  - Regurgitation [Unknown]
  - Abdominal pain upper [Unknown]
  - Abdominal discomfort [Recovering/Resolving]
  - Decreased appetite [Unknown]
  - Productive cough [Unknown]
  - Weight decreased [Unknown]
  - Throat irritation [Unknown]
  - Cough [Unknown]
  - Drug ineffective [Unknown]

NARRATIVE: CASE EVENT DATE: 20210101
